FAERS Safety Report 5096565-X (Version None)
Quarter: 2006Q3

REPORT INFORMATION
  Report Type: 
  Country: None (occurrence: None)
  Receive Date: 20060830
  Receipt Date: 20060817
  Transmission Date: 20061208
  Serious: Yes (Life-Threatening, Hospitalization)
  Sender: FDA-Public Use
  Company Number: 2006100615

PATIENT
  Age: 45 Year
  Sex: Male
  Weight: 84.1 kg

DRUGS (1)
  1. SUTENT [Suspect]
     Indication: RENAL CELL CARCINOMA STAGE UNSPECIFIED
     Dosage: 50 MG (50 MG FREQUENCY: DAILY INTERVAL CYCLIC) ORAL
     Route: 048
     Dates: start: 20060803

REACTIONS (4)
  - FASCIITIS [None]
  - LOWER GASTROINTESTINAL HAEMORRHAGE [None]
  - PERIANAL ABSCESS [None]
  - SUBCUTANEOUS ABSCESS [None]
